FAERS Safety Report 6013401-5 (Version None)
Quarter: 2008Q4

REPORT INFORMATION
  Report Type: 
  Country: None (occurrence: None)
  Receive Date: 20081216
  Receipt Date: 20080320
  Transmission Date: 20090506
  Serious: Yes (Other)
  Sender: FDA-Public Use
  Company Number: US-WYE-H03231008

PATIENT
  Age: 56 Year
  Sex: Male
  Weight: 83.99 kg

DRUGS (3)
  1. EFFEXOR XR [Suspect]
     Indication: DEPRESSION
     Dosage: 75 MG 1X PER 1 DAY, ORAL
     Route: 048
     Dates: start: 20071101
  2. DARVOCET-N (DEXTROPROPOXYPHENE/PARACETAMOL) [Concomitant]
  3. AMBIEN [Concomitant]

REACTIONS (7)
  - DEPRESSED MOOD [None]
  - DRUG WITHDRAWAL SYNDROME [None]
  - ELECTRIC SHOCK [None]
  - HYPOAESTHESIA [None]
  - PARAESTHESIA [None]
  - THINKING ABNORMAL [None]
  - TINNITUS [None]
